FAERS Safety Report 23106808 (Version 1)
Quarter: 2023Q4

REPORT INFORMATION
  Report Type: Spontaneous
  Country: JP (occurrence: JP)
  Receive Date: 20231026
  Receipt Date: 20231026
  Transmission Date: 20240110
  Serious: Yes (Other)
  Sender: FDA-Public Use
  Company Number: JP-CHUGAI-2023037071

PATIENT
  Age: 7 Decade
  Sex: Male

DRUGS (1)
  1. ENSPRYNG [Suspect]
     Active Substance: SATRALIZUMAB-MWGE
     Indication: Neuromyelitis optica spectrum disorder
     Dosage: UNK
     Route: 058
     Dates: start: 20230915

REACTIONS (1)
  - Neuromyelitis optica spectrum disorder [Unknown]

NARRATIVE: CASE EVENT DATE: 20230929
